FAERS Safety Report 5340537-4 (Version None)
Quarter: 2007Q2

REPORT INFORMATION
  Report Type: 
  Country: None (occurrence: None)
  Receive Date: 20070405
  Receipt Date: 20061128
  Transmission Date: 20071010
  Serious: No
  Sender: FDA-Public Use
  Company Number: US200612000188

PATIENT
  Sex: Female

DRUGS (2)
  1. STRATTERA [Suspect]
     Indication: ATTENTION DEFICIT/HYPERACTIVITY DISORDER
     Dosage: ORAL
     Route: 048
  2. CYMBALTA [Suspect]
     Dosage: ORAL
     Route: 048

REACTIONS (2)
  - CONSTIPATION [None]
  - GLUCOSE TOLERANCE IMPAIRED [None]
